FAERS Safety Report 8794427 (Version 2)
Quarter: 2012Q4

REPORT INFORMATION
  Report Type: 
  Country: US (occurrence: US)
  Receive Date: 20120917
  Receipt Date: 20121008
  Transmission Date: 20130627
  Serious: No
  Sender: FDA-Public Use
  Company Number: US-VERTEX PHARMACEUTICAL INC.-AE-2012-009436

PATIENT
  Age: 67 Year
  Sex: Female

DRUGS (4)
  1. VX-950 [Suspect]
     Indication: HEPATITIS C
     Dosage: UNK
     Route: 048
     Dates: start: 20111102, end: 20120125
  2. RIBAVIRIN [Concomitant]
     Indication: HEPATITIS C
     Dosage: UNK
     Dates: start: 20111102
  3. PEGASYS [Concomitant]
     Indication: HEPATITIS C
     Dosage: UNK
     Dates: start: 20111102
  4. PEGASYS [Concomitant]
     Dates: start: 20120807

REACTIONS (5)
  - White blood cell count decreased [Not Recovered/Not Resolved]
  - Weight decreased [Not Recovered/Not Resolved]
  - Decreased appetite [Not Recovered/Not Resolved]
  - Platelet count decreased [Not Recovered/Not Resolved]
  - Nausea [Not Recovered/Not Resolved]
